FAERS Safety Report 8469682-1 (Version None)
Quarter: 2012Q2

REPORT INFORMATION
  Report Type: 
  Country: None (occurrence: None)
  Receive Date: 20120626
  Receipt Date: 20120621
  Transmission Date: 20120825
  Serious: Yes (Death, Life-Threatening, Disabling)
  Sender: FDA-Public Use
  Company Number: FR-ROCHE-1001452

PATIENT
  Sex: Male
  Weight: 80 kg

DRUGS (3)
  1. TENECTEPLASE [Suspect]
     Indication: ACUTE MYOCARDIAL INFARCTION
  2. CLOPIDOGREL BISULFATE [Suspect]
     Indication: ACUTE MYOCARDIAL INFARCTION
     Dates: start: 20110320
  3. ENOXAPARIN SODIUM [Suspect]
     Indication: ACUTE MYOCARDIAL INFARCTION
     Dates: start: 20110320

REACTIONS (3)
  - NECROSIS [None]
  - HAEMORRHAGE INTRACRANIAL [None]
  - INCISION SITE HAEMORRHAGE [None]
